FAERS Safety Report 19703459 (Version 2)
Quarter: 2021Q3

REPORT INFORMATION
  Report Type: Report from Study
  Country: US (occurrence: US)
  Receive Date: 20210816
  Receipt Date: 20210913
  Transmission Date: 20211014
  Serious: No
  Sender: FDA-Public Use
  Company Number: US-SA-2021SA269128

PATIENT
  Age: 26 Year
  Sex: Female

DRUGS (2)
  1. DUPIXENT [Suspect]
     Active Substance: DUPILUMAB
     Dosage: 300 MG, QOW
     Route: 058
     Dates: start: 20210728
  2. DUPIXENT [Suspect]
     Active Substance: DUPILUMAB
     Indication: DERMATITIS ATOPIC
     Dosage: 600 MG, 1X
     Route: 041

REACTIONS (7)
  - Skin haemorrhage [Unknown]
  - Dry skin [Unknown]
  - Sleep disorder [Unknown]
  - Pruritus [Recovering/Resolving]
  - Product storage error [Unknown]
  - Skin exfoliation [Unknown]
  - Skin fissures [Unknown]

NARRATIVE: CASE EVENT DATE: 2021
